FAERS Safety Report 21580328 (Version 2)
Quarter: 2022Q4

REPORT INFORMATION
  Report Type: Report from Study
  Country: US (occurrence: US)
  Receive Date: 20221110
  Receipt Date: 20221229
  Transmission Date: 20230112
  Serious: No
  Sender: FDA-Public Use
  Company Number: US-ACADIA PHARMACEUTICALS INC.-ACA-2022-PIM-003561

PATIENT
  Sex: Male

DRUGS (3)
  1. NUPLAZID [Suspect]
     Active Substance: PIMAVANSERIN TARTRATE
     Indication: Parkinson^s disease psychosis
     Dosage: 34 MILLIGRAM, QD
     Route: 048
     Dates: start: 20220923, end: 20221006
  2. NUPLAZID [Suspect]
     Active Substance: PIMAVANSERIN TARTRATE
     Indication: Parkinson^s disease
     Dosage: 34 MILLIGRAM, QD
     Route: 048
     Dates: start: 20221013
  3. QUETIAPINE [Concomitant]
     Active Substance: QUETIAPINE

REACTIONS (14)
  - Condition aggravated [Not Recovered/Not Resolved]
  - Condition aggravated [Unknown]
  - Abnormal behaviour [Unknown]
  - Anger [Unknown]
  - Anxiety [Unknown]
  - Hypersomnia [Unknown]
  - Decreased appetite [Unknown]
  - Muscular weakness [Unknown]
  - Hallucination [Not Recovered/Not Resolved]
  - Agitation [Unknown]
  - Somnolence [Unknown]
  - Aggression [Unknown]
  - Gait disturbance [Unknown]
  - Hallucination [Unknown]

NARRATIVE: CASE EVENT DATE: 20220101
